FAERS Safety Report 6444389-0 (Version None)
Quarter: 2009Q4

REPORT INFORMATION
  Report Type: 
  Country: None (occurrence: None)
  Receive Date: 20091118
  Receipt Date: 20091112
  Transmission Date: 20100525
  Serious: Yes (Other)
  Sender: FDA-Public Use
  Company Number: US-BRISTOL-MYERS SQUIBB COMPANY-14836753

PATIENT

DRUGS (1)
  1. ORENCIA [Suspect]
     Dosage: 5-6 MO

REACTIONS (1)
  - PANCREATITIS NECROTISING [None]
